FAERS Safety Report 9023721 (Version 2)
Quarter: 2013Q1

REPORT INFORMATION
  Report Type: Spontaneous
  Country: JP (occurrence: JP)
  Receive Date: 20130121
  Receipt Date: 20130227
  Transmission Date: 20140127
  Serious: No
  Sender: FDA-Public Use
  Company Number: JP-AMGEN-JPNSP2013003707

PATIENT
  Age: 79 None
  Sex: Male

DRUGS (14)
  1. RANMARK [Suspect]
     Indication: METASTASES TO BONE
     Route: 058
     Dates: start: 20120712, end: 20121129
  2. NOVAMIN [Concomitant]
     Indication: NAUSEA
     Route: 048
     Dates: start: 20121212, end: 20130109
  3. DAIKENCHUTO [Concomitant]
     Indication: CONSTIPATION
     Route: 048
     Dates: start: 20121213
  4. MAGLAX [Concomitant]
     Indication: CONSTIPATION
     Route: 048
     Dates: start: 20121213
  5. CALONAL [Concomitant]
     Indication: CANCER PAIN
     Route: 048
     Dates: start: 20121213
  6. ASPARA CA [Concomitant]
     Indication: HYPOCALCAEMIA
     Route: 048
     Dates: start: 20120719
  7. OXYCONTIN [Concomitant]
     Indication: CANCER PAIN
     Route: 048
     Dates: start: 20121212
  8. OXINORM [Concomitant]
     Indication: CANCER PAIN
     Dosage: AS NEEDED
     Route: 048
     Dates: start: 20121212
  9. BAYASPIRIN [Concomitant]
     Indication: CEREBRAL INFARCTION
     Route: 065
     Dates: start: 20121209
  10. NEXIUM [Concomitant]
     Indication: GASTRIC ULCER
     Route: 048
     Dates: start: 20121209
  11. ALFAROL [Concomitant]
     Indication: HYPOCALCAEMIA
     Route: 048
     Dates: start: 20120719, end: 20121225
  12. ASPARA POTASSIUM [Concomitant]
     Indication: HYPOKALAEMIA
     Route: 065
     Dates: start: 20120614
  13. PROSEXOL [Concomitant]
     Indication: PROSTATE CANCER
     Route: 065
     Dates: start: 20120809
  14. TRAMAL [Concomitant]
     Indication: CANCER PAIN
     Route: 048
     Dates: start: 20121129, end: 20121211

REACTIONS (1)
  - Hypocalcaemia [Recovered/Resolved]
